FAERS Safety Report 9317585 (Version 2)
Quarter: 2013Q2

REPORT INFORMATION
  Report Type: Spontaneous
  Country: JP (occurrence: JP)
  Receive Date: 20130530
  Receipt Date: 20130613
  Transmission Date: 20140414
  Serious: Yes (Death, Other)
  Sender: FDA-Public Use
  Company Number: JP-CELGENEUS-087-50794-13054140

PATIENT
  Age: 60 Year
  Sex: Male

DRUGS (1)
  1. VIDAZA [Suspect]
     Indication: MYELODYSPLASTIC SYNDROME
     Route: 065

REACTIONS (3)
  - Cerebral haemorrhage [Fatal]
  - Cystitis haemorrhagic [Unknown]
  - Anal abscess [Unknown]
